FAERS Safety Report 5994523-1 (Version None)
Quarter: 2008Q4

REPORT INFORMATION
  Report Type: 
  Country: None (occurrence: None)
  Receive Date: 20081212
  Receipt Date: 20081203
  Transmission Date: 20090506
  Serious: Yes (Hospitalization)
  Sender: FDA-Public Use
  Company Number: FR-MERCK-0812USA02102

PATIENT
  Age: 74 Year
  Sex: Male

DRUGS (6)
  1. MODURETIC 5-50 [Suspect]
     Route: 048
     Dates: end: 20080901
  2. SPIRIVA [Suspect]
     Route: 065
     Dates: end: 20080901
  3. ALLOPURINOL [Suspect]
     Route: 065
     Dates: end: 20080901
  4. KARDEGIC [Suspect]
     Route: 065
     Dates: end: 20080901
  5. BUDESONIDE AND FORMOTEROL FUMARATE [Suspect]
     Route: 065
     Dates: end: 20080901
  6. DETENSIEL [Suspect]
     Route: 065
     Dates: end: 20080901

REACTIONS (4)
  - CONFUSIONAL STATE [None]
  - CONSTIPATION [None]
  - FAECALOMA [None]
  - HYPONATRAEMIA [None]
